FAERS Safety Report 8319195-2 (Version None)
Quarter: 2012Q2

REPORT INFORMATION
  Report Type: 
  Country: None (occurrence: None)
  Receive Date: 20120427
  Receipt Date: 20120424
  Transmission Date: 20120825
  Serious: Yes (Hospitalization, Other)
  Sender: FDA-Public Use
  Company Number: US-MERCK-0706USA00964

PATIENT
  Age: 69 Year
  Sex: Female
  Weight: 60 kg

DRUGS (5)
  1. FOSAMAX [Suspect]
     Route: 048
     Dates: start: 20020101, end: 20060101
  2. FOSAMAX [Suspect]
     Indication: OSTEOPOROSIS
     Route: 048
     Dates: start: 19990101, end: 20020130
  3. FOSAMAX [Suspect]
     Route: 048
     Dates: start: 20020101, end: 20060101
  4. FOSAMAX [Suspect]
     Indication: OSTEOPENIA
     Route: 048
     Dates: start: 19990101, end: 20020130
  5. PREMARIN [Concomitant]
     Indication: HORMONE REPLACEMENT THERAPY
     Route: 065
     Dates: start: 19900101, end: 20060301

REACTIONS (67)
  - UTERINE DISORDER [None]
  - TRANSIENT ISCHAEMIC ATTACK [None]
  - PAIN [None]
  - GROIN PAIN [None]
  - SINUS BRADYCARDIA [None]
  - RIB FRACTURE [None]
  - PRODUCTIVE COUGH [None]
  - NERVE COMPRESSION [None]
  - IMPAIRED HEALING [None]
  - CARDIAC DISORDER [None]
  - HEAD INJURY [None]
  - INCREASED TENDENCY TO BRUISE [None]
  - UTERINE LEIOMYOMA [None]
  - URINARY TRACT INFECTION [None]
  - TRACHOMA [None]
  - SKIN IRRITATION [None]
  - NECK INJURY [None]
  - LYMPHADENOPATHY [None]
  - HEADACHE [None]
  - ADNEXA UTERI MASS [None]
  - OSTEONECROSIS OF JAW [None]
  - CEREBROVASCULAR ACCIDENT [None]
  - INTERVERTEBRAL DISC PROTRUSION [None]
  - CEREBRAL ISCHAEMIA [None]
  - DISCOMFORT [None]
  - HAEMATURIA [None]
  - BACK PAIN [None]
  - ARTHROPATHY [None]
  - INSOMNIA [None]
  - SPINAL OSTEOARTHRITIS [None]
  - HYPERTENSION [None]
  - OSTEOMYELITIS [None]
  - LUMBAR RADICULOPATHY [None]
  - SPORTS INJURY [None]
  - INADEQUATE DIET [None]
  - HYPERVITAMINOSIS [None]
  - CEREBRAL ARTERIOSCLEROSIS [None]
  - CEREBRAL ATROPHY [None]
  - CLONIC CONVULSION [None]
  - OVARIAN NEOPLASM [None]
  - GASTROOESOPHAGEAL REFLUX DISEASE [None]
  - FALL [None]
  - KELOID SCAR [None]
  - ASTHENIA [None]
  - HYPERGLYCAEMIA [None]
  - CERVICAL POLYP [None]
  - CAROTID ARTERY STENOSIS [None]
  - SUBDURAL HAEMATOMA [None]
  - GONORRHOEA [None]
  - INTRACRANIAL HAEMANGIOMA [None]
  - INTERVERTEBRAL DISC COMPRESSION [None]
  - INFECTION SUSCEPTIBILITY INCREASED [None]
  - TREMOR [None]
  - VAGINAL HAEMORRHAGE [None]
  - CAROTID ARTERY DISEASE [None]
  - BREAST CANCER IN SITU [None]
  - METASTASES TO BONE [None]
  - COUGH [None]
  - URINE ANALYSIS ABNORMAL [None]
  - SEASONAL ALLERGY [None]
  - LUNG NEOPLASM [None]
  - DEVICE RELATED INFECTION [None]
  - HYPERLIPIDAEMIA [None]
  - BLOOD CHOLESTEROL INCREASED [None]
  - INFLUENZA [None]
  - FATIGUE [None]
  - UPPER-AIRWAY COUGH SYNDROME [None]
